FAERS Safety Report 8575752-X (Version None)
Quarter: 2012Q3

REPORT INFORMATION
  Report Type: 
  Country: None (occurrence: None)
  Receive Date: 20120807
  Receipt Date: 20120802
  Transmission Date: 20120928
  Serious: Yes (Hospitalization)
  Sender: FDA-Public Use
  Company Number: US-SANOFI-AVENTIS-2012SA048970

PATIENT
  Age: 58 Year
  Sex: Male
  Weight: 53.64 kg

DRUGS (9)
  1. LOVENOX [Suspect]
  2. LOVENOX [Suspect]
  3. TEMAZEPAM [Concomitant]
     Indication: SLEEP DISORDER
     Dosage: MG PO AT BEDTIME AS NEEDED
     Route: 048
     Dates: start: 20030101
  4. LOVENOX [Suspect]
     Indication: PULMONARY EMBOLISM
     Dates: start: 20120419
  5. LOVENOX [Suspect]
     Dates: end: 20120707
  6. LOVENOX [Suspect]
     Dates: end: 20120707
  7. FLUTICASONE PROPIONATE [Concomitant]
     Indication: CHRONIC OBSTRUCTIVE PULMONARY DISEASE
     Dosage: DOSE:2 PUFF(S)
     Dates: start: 20030101
  8. ESOMEPRAZOLE [Concomitant]
     Route: 048
     Dates: start: 20070101
  9. LOVENOX [Suspect]
     Indication: ORTHOPEDIC PROCEDURE
     Dates: start: 20120419

REACTIONS (3)
  - INJECTION SITE HAEMATOMA [None]
  - PULMONARY EMBOLISM [None]
  - PULMONARY INFARCTION [None]
